FAERS Safety Report 14033691 (Version 2)
Quarter: 2017Q4

REPORT INFORMATION
  Report Type: Spontaneous
  Country: FR (occurrence: FR)
  Receive Date: 20171003
  Receipt Date: 20171006
  Transmission Date: 20180321
  Serious: No
  Sender: FDA-Public Use
  Company Number: PHHY2017FR142481

PATIENT
  Sex: Male

DRUGS (1)
  1. COSENTYX [Suspect]
     Active Substance: SECUKINUMAB
     Indication: PSORIASIS
     Dosage: 300 MG, QMO (1 DF EVERY 4 WEEKS)
     Route: 065

REACTIONS (3)
  - Skin bacterial infection [Unknown]
  - Impetigo [Unknown]
  - Candida infection [Unknown]
